FAERS Safety Report 8312957-7 (Version None)
Quarter: 2012Q2

REPORT INFORMATION
  Report Type: 
  Country: None (occurrence: None)
  Receive Date: 20120426
  Receipt Date: 20120418
  Transmission Date: 20120825
  Serious: Yes (Other)
  Sender: FDA-Public Use
  Company Number: CA-US-EMD SERONO, INC.-230113J09CAN

PATIENT
  Sex: Female

DRUGS (7)
  1. ACETAMINIPHEN [Concomitant]
     Indication: PREMEDICATION
  2. SYNTHROID [Concomitant]
     Indication: PRODUCT USED FOR UNKNOWN INDICATION
  3. CYPROLEX [Concomitant]
     Indication: PRODUCT USED FOR UNKNOWN INDICATION
  4. REBIF [Suspect]
     Indication: RELAPSING-REMITTING MULTIPLE SCLEROSIS
     Route: 058
     Dates: start: 20090929
  5. REBIF [Suspect]
     Route: 058
  6. TYLENOL (CAPLET) [Concomitant]
     Indication: PRODUCT USED FOR UNKNOWN INDICATION
  7. APO AMITRIPTYLINE [Concomitant]
     Indication: PRODUCT USED FOR UNKNOWN INDICATION

REACTIONS (8)
  - HEPATIC CYST [None]
  - DEPRESSION [None]
  - INJECTION SITE ERYTHEMA [None]
  - MYALGIA [None]
  - THYROID CANCER [None]
  - FATIGUE [None]
  - SUICIDAL IDEATION [None]
  - LYMPHADENOPATHY [None]
